FAERS Safety Report 13685422 (Version 7)
Quarter: 2019Q4

REPORT INFORMATION
  Report Type: Report from Study
  Country: CO (occurrence: CO)
  Receive Date: 20170623
  Receipt Date: 20191218
  Transmission Date: 20200122
  Serious: Yes (Death, Hospitalization, Other)
  Sender: FDA-Public Use
  Company Number: CO-INCYTE CORPORATION-2017IN004891

PATIENT

DRUGS (7)
  1. JAKAVI [Suspect]
     Active Substance: RUXOLITINIB
     Indication: PRIMARY MYELOFIBROSIS
     Dosage: 15 MG, Q12H
     Route: 048
     Dates: start: 20160215
  2. ERYTHROPOIETIN [Concomitant]
     Active Substance: ERYTHROPOIETIN
     Indication: MYELOFIBROSIS
     Dosage: 2000 U, THREE DAYS A WEEK
     Route: 058
  3. JAKAVI [Suspect]
     Active Substance: RUXOLITINIB
     Dosage: 20 MG,(4 TABLETS OF 5 MG) QD (ONCE DAILY)
     Route: 048
     Dates: start: 2016
  4. JAKAVI [Suspect]
     Active Substance: RUXOLITINIB
     Dosage: 5 MG, UNK (TWICE A DAY/EVERY 12 HOURS)
     Route: 048
  5. FOLIC ACID. [Concomitant]
     Active Substance: FOLIC ACID
     Indication: PRODUCT USED FOR UNKNOWN INDICATION
     Dosage: 1 MG, QD
     Route: 048
  6. ENALAPRIL [Concomitant]
     Active Substance: ENALAPRIL
     Indication: HYPERTENSION
     Dosage: 5 MG, QD
     Route: 048
  7. JAKAVI [Suspect]
     Active Substance: RUXOLITINIB
     Dosage: 10 MG, (2 TABLETS OF 5 MG) QD (ONCE DAILY)
     Route: 048

REACTIONS (17)
  - Death [Fatal]
  - Blood uric acid increased [Unknown]
  - Haemorrhoids [Unknown]
  - Weight increased [Unknown]
  - Gastritis [Unknown]
  - Diarrhoea haemorrhagic [Unknown]
  - Tinnitus [Unknown]
  - Dysuria [Unknown]
  - Inappropriate schedule of product administration [Unknown]
  - Haemoglobin decreased [Unknown]
  - Influenza [Unknown]
  - Diarrhoea [Unknown]
  - Urinary tract infection [Unknown]
  - Platelet count decreased [Unknown]
  - Deafness [Unknown]
  - Malaise [Unknown]
  - Wound infection [Unknown]

NARRATIVE: CASE EVENT DATE: 20190921
